FAERS Safety Report 4744452-6 (Version None)
Quarter: 2005Q3

REPORT INFORMATION
  Report Type: 
  Country: None (occurrence: None)
  Receive Date: 20050809
  Receipt Date: 20050728
  Transmission Date: 20060218
  Serious: Yes (Other)
  Sender: FDA-Public Use
  Company Number: 2005083706

PATIENT
  Age: 60 Year
  Sex: Male

DRUGS (3)
  1. VIAGRA [Suspect]
     Indication: ERECTILE DYSFUNCTION
     Dosage: (50 MG, PRN),
     Dates: start: 19980603, end: 19990131
  2. NORVASC [Concomitant]
  3. PRINIVIL [Concomitant]

REACTIONS (9)
  - AMAUROSIS [None]
  - BLINDNESS UNILATERAL [None]
  - EYE DISORDER [None]
  - ISCHAEMIA [None]
  - OPTIC ISCHAEMIC NEUROPATHY [None]
  - RETINAL ARTERY OCCLUSION [None]
  - RETINAL EXUDATES [None]
  - RETINAL VASCULAR DISORDER [None]
  - RETINAL VASCULAR OCCLUSION [None]
